FAERS Safety Report 5451279-9 (Version None)
Quarter: 2007Q3

REPORT INFORMATION
  Report Type: 
  Country: None (occurrence: None)
  Receive Date: 20070911
  Receipt Date: 20070911
  Transmission Date: 20080115
  Serious: No
  Sender: FDA-Public Use
  Company Number: None

PATIENT
  Age: 32 Year
  Sex: Female
  Weight: 58.9676 kg

DRUGS (1)
  1. AMBIEN CR [Suspect]
     Indication: INSOMNIA
     Dosage: 12.5 MG NIGHTLY AS NEEDED PO
     Route: 048
     Dates: start: 20070701, end: 20070831

REACTIONS (3)
  - AMNESIA [None]
  - MIDDLE INSOMNIA [None]
  - SOMNAMBULISM [None]
